FAERS Safety Report 8025018-1 (Version None)
Quarter: 2011Q4

REPORT INFORMATION
  Report Type: 
  Country: None (occurrence: None)
  Receive Date: 20111130
  Receipt Date: 20110215
  Transmission Date: 20120403
  Serious: Yes (Other)
  Sender: FDA-Public Use
  Company Number: TRP_07224_2010

PATIENT
  Age: 43 Year
  Sex: Male
  Weight: 94.3482 kg

DRUGS (3)
  1. INTERFERON ALFACON-1 (INTERFERON ALFACON-1) (15 MICROGRAM) [Suspect]
     Indication: HEPATITIS C
     Dosage: 15 MCG, 1 IN 1 D, SUBCUTANEOUS
     Route: 058
     Dates: start: 20100420, end: 20110201
  2. RIBAVIRIN [Suspect]
     Indication: HEPATITIS C
     Dosage: 1600 MILLIGRAM DAILY, ORAL ; 1200 MILLIGRAM DAILY, ORAL
     Route: 048
     Dates: start: 20100420, end: 20100827
  3. RIBAVIRIN [Suspect]
     Indication: HEPATITIS C
     Dosage: 1600 MILLIGRAM DAILY, ORAL ; 1200 MILLIGRAM DAILY, ORAL
     Route: 048
     Dates: start: 20100827

REACTIONS (2)
  - THROMBOCYTOPENIA [None]
  - ANAEMIA [None]
